FAERS Safety Report 9246576 (Version 1)
Quarter: 2013Q2

REPORT INFORMATION
  Report Type: Spontaneous
  Country: US (occurrence: US)
  Receive Date: 20130422
  Receipt Date: 20130422
  Transmission Date: 20140414
  Serious: No
  Sender: FDA-Public Use
  Company Number: US-ABBOTT-12P-163-0977864-00

PATIENT
  Sex: Female
  Weight: 43.13 kg

DRUGS (4)
  1. LUPRON DEPOT-PED [Suspect]
     Indication: PRECOCIOUS PUBERTY
     Dates: start: 2011
  2. FLUTICASONE [Concomitant]
     Indication: SEASONAL ALLERGY
  3. LORATIDINE [Concomitant]
     Indication: SEASONAL ALLERGY
  4. MULTIVITAMIN [Concomitant]
     Indication: VITAMIN SUPPLEMENTATION

REACTIONS (1)
  - Mood swings [Unknown]
